FAERS Safety Report 10040781 (Version 1)
Quarter: 2014Q1

REPORT INFORMATION
  Report Type: Spontaneous
  Country: US (occurrence: None)
  Receive Date: 20140326
  Receipt Date: 20140326
  Transmission Date: 20141002
  Serious: Yes (Other)
  Sender: FDA-Public Use
  Company Number: None

PATIENT
  Age: 24 Year
  Sex: Female

DRUGS (2)
  1. DULOXETINE HCL [Suspect]
     Indication: ANXIETY
     Dosage: 3 PILLS, ONCE DAILY, TAKEN BY MOUTH
     Route: 048
     Dates: start: 20140124, end: 20140222
  2. DULOXETINE HCL [Suspect]
     Indication: TENSION HEADACHE
     Dosage: 3 PILLS, ONCE DAILY, TAKEN BY MOUTH
     Route: 048
     Dates: start: 20140124, end: 20140222

REACTIONS (4)
  - Chest pain [None]
  - Product substitution issue [None]
  - Drug ineffective [None]
  - Product quality issue [None]
